FAERS Safety Report 19266859 (Version 1)
Quarter: 2021Q2

REPORT INFORMATION
  Report Type: Other
  Country: US (occurrence: US)
  Receive Date: 20210518
  Receipt Date: 20210518
  Transmission Date: 20210717
  Serious: Yes (Life-Threatening, Hospitalization, Other)
  Sender: FDA-Public Use
  Company Number: US-DEXPHARM-20210626

PATIENT
  Age: 15 Year

DRUGS (10)
  1. ALLOPURINOL. [Interacting]
     Active Substance: ALLOPURINOL
     Dosage: 4.5 G
  2. TRAZODONE [Interacting]
     Active Substance: TRAZODONE HYDROCHLORIDE
     Dosage: 2 G
  3. AMLODIPINE [Suspect]
     Active Substance: AMLODIPINE BESYLATE
     Dosage: 400 MG
  4. BENZONATATE. [Interacting]
     Active Substance: BENZONATATE
     Dosage: 1 G
  5. VASOPRESSIN. [Concomitant]
     Active Substance: VASOPRESSIN
  6. INSULIN [Suspect]
     Active Substance: INSULIN NOS
     Dosage: MAXIMUM DOSE OF 9 UNITS/KG/H
     Route: 041
  7. CALCIUM CHLORIDE. [Concomitant]
     Active Substance: CALCIUM CHLORIDE
  8. DOBUTAMINE [Concomitant]
     Active Substance: DOBUTAMINE HYDROCHLORIDE
  9. EFFEXOR [Interacting]
     Active Substance: VENLAFAXINE HYDROCHLORIDE
     Dosage: 2.1 G
  10. HYDROXOCOBALAMIN [Suspect]
     Active Substance: HYDROXOCOBALAMIN
     Dosage: 5 G
     Route: 041

REACTIONS (11)
  - Fluid overload [Recovered/Resolved]
  - Toxicity to various agents [Recovered/Resolved]
  - Vasoplegia syndrome [Recovered/Resolved]
  - Hypoglycaemia [Recovered/Resolved]
  - Overdose [Recovered/Resolved]
  - Chromaturia [Recovered/Resolved]
  - Metabolic acidosis [Recovered/Resolved]
  - Acute respiratory distress syndrome [Recovered/Resolved]
  - Drug interaction [Recovered/Resolved]
  - Flushing [Recovered/Resolved]
  - Acute kidney injury [Recovered/Resolved]
